FAERS Safety Report 18285881 (Version 1)
Quarter: 2020Q3

REPORT INFORMATION
  Report Type: Spontaneous
  Country: DE (occurrence: DE)
  Receive Date: 20200919
  Receipt Date: 20200919
  Transmission Date: 20201103
  Serious: Yes (Death, Hospitalization, Other)
  Sender: FDA-Public Use
  Company Number: DE-ACCORD-201695

PATIENT
  Age: 80 Year
  Weight: 100 kg

DRUGS (6)
  1. SIMVASTATIN. [Concomitant]
     Active Substance: SIMVASTATIN
  2. BLOPRESS [Concomitant]
     Active Substance: CANDESARTAN CILEXETIL
  3. TORASEMIDE [Concomitant]
     Active Substance: TORSEMIDE
  4. BELOC [Concomitant]
  5. ASPIRIN. [Concomitant]
     Active Substance: ASPIRIN
  6. ALLOPURINOL. [Suspect]
     Active Substance: ALLOPURINOL
     Indication: HYPERURICAEMIA
     Dosage: 300MG 0?1?0
     Route: 048
     Dates: start: 20200201, end: 20200909

REACTIONS (6)
  - General physical health deterioration [Unknown]
  - Infection [Recovering/Resolving]
  - Pyrexia [Unknown]
  - Leukopenia [Recovering/Resolving]
  - Pancytopenia [Fatal]
  - Bone marrow failure [Fatal]

NARRATIVE: CASE EVENT DATE: 2020
